FAERS Safety Report 7219691-5 (Version None)
Quarter: 2011Q1

REPORT INFORMATION
  Report Type: 
  Country: None (occurrence: None)
  Receive Date: 20110111
  Receipt Date: 20110106
  Transmission Date: 20110831
  Serious: Yes (Hospitalization)
  Sender: FDA-Public Use
  Company Number: FR-BRISTOL-MYERS SQUIBB COMPANY-15477532

PATIENT
  Age: 58 Year
  Sex: Female

DRUGS (3)
  1. ABILIFY [Suspect]
     Dosage: 1 DF: 1 TABLET
     Route: 048
     Dates: start: 20101109, end: 20101125
  2. DEPAKOTE [Suspect]
     Dosage: 1 DF: 2 TABLETS
     Route: 048
     Dates: start: 20101026, end: 20101129
  3. TERCIAN [Suspect]
     Dosage: TERCIAN 40 MG/ML
     Route: 048
     Dates: start: 20101102, end: 20101129

REACTIONS (5)
  - RHABDOMYOLYSIS [None]
  - PYREXIA [None]
  - CONFUSIONAL STATE [None]
  - DELIRIUM [None]
  - NEUROLEPTIC MALIGNANT SYNDROME [None]
